FAERS Safety Report 7815742-5 (Version None)
Quarter: 2011Q4

REPORT INFORMATION
  Report Type: 
  Country: None (occurrence: None)
  Receive Date: 20111014
  Receipt Date: 20111011
  Transmission Date: 20120403
  Serious: Yes (Disabling, Other)
  Sender: FDA-Public Use
  Company Number: US-ABBOTT-11P-163-0863210-00

PATIENT
  Age: 34 Year
  Sex: Female
  Weight: 87 kg

DRUGS (4)
  1. DEPO-PROVERA [Suspect]
     Indication: ENDOMETRIOSIS
  2. LUPRON DEPOT [Suspect]
     Indication: ENDOMETRIOSIS
     Dosage: MONTHLY
  3. DEPO-PROVERA [Suspect]
     Indication: CONTRACEPTION
     Dates: start: 20030101, end: 20070101
  4. LUPRON DEPOT [Suspect]
     Indication: CONTRACEPTION

REACTIONS (17)
  - DISABILITY [None]
  - ARTHRALGIA [None]
  - FATIGUE [None]
  - DRUG INEFFECTIVE [None]
  - MOVEMENT DISORDER [None]
  - PAIN IN EXTREMITY [None]
  - ASTHENIA [None]
  - GENERAL PHYSICAL HEALTH DETERIORATION [None]
  - HAEMORRHAGE [None]
  - ILL-DEFINED DISORDER [None]
  - EMOTIONAL DISTRESS [None]
  - RED BLOOD CELL COUNT DECREASED [None]
  - STRESS [None]
  - ECTOPIC PREGNANCY [None]
  - MENTAL DISORDER [None]
  - HYPOAESTHESIA [None]
  - UNINTENDED PREGNANCY [None]
